FAERS Safety Report 9212783 (Version 1)
Quarter: 2013Q2

REPORT INFORMATION
  Report Type: Report from Study
  Country: PT (occurrence: PT)
  Receive Date: 20130405
  Receipt Date: 20130405
  Transmission Date: 20140414
  Serious: Yes (Other)
  Sender: FDA-Public Use
  Company Number: PT-AMGEN-UK302307

PATIENT
  Age: 84 Year
  Sex: Male

DRUGS (6)
  1. DENOSUMAB [Suspect]
     Indication: PROSTATE CANCER
     Dosage: UNK UNK, UNK
     Route: 058
     Dates: start: 20080401, end: 20080818
  2. DENOSUMAB [Suspect]
     Dosage: UNK UNK, UNK
     Route: 058
     Dates: start: 2008
  3. BISOPROLOL FUMARATE [Concomitant]
     Dosage: 5 MG, QD
     Route: 048
  4. TRIMETAZIDINE DIHYDROCHLORIDE [Concomitant]
     Dosage: UNK UNK, QD
     Route: 048
     Dates: start: 2005
  5. CALCIUM CARBONATE [Concomitant]
     Dosage: 1500 MG, QD
     Route: 048
     Dates: start: 20080401
  6. CHOLECALCIFEROL [Concomitant]
     Dosage: 400 IU, QD
     Route: 048
     Dates: start: 20080401

REACTIONS (1)
  - Deep vein thrombosis [Recovered/Resolved]
